FAERS Safety Report 9200738 (Version 2)
Quarter: 2013Q2

REPORT INFORMATION
  Report Type: Spontaneous
  Country: US (occurrence: US)
  Receive Date: 20130401
  Receipt Date: 20130410
  Transmission Date: 20140414
  Serious: Yes (Death)
  Sender: FDA-Public Use
  Company Number: US-009507513-1303USA013791

PATIENT
  Age: 45 Year
  Sex: Male

DRUGS (1)
  1. MK-0000 (111) [Suspect]
     Dosage: UNK
     Dates: start: 201303

REACTIONS (1)
  - Death [Fatal]
